FAERS Safety Report 21074441 (Version 1)
Quarter: 2022Q3

REPORT INFORMATION
  Report Type: Spontaneous
  Country: US (occurrence: US)
  Receive Date: 20220713
  Receipt Date: 20220713
  Transmission Date: 20221027
  Serious: Yes (Life-Threatening, Hospitalization, Other)
  Sender: FDA-Public Use
  Company Number: US-PFIZER INC-PV202200006647

PATIENT
  Age: 75 Year
  Sex: Male

DRUGS (7)
  1. METOPROLOL SUCCINATE [Interacting]
     Active Substance: METOPROLOL SUCCINATE
     Indication: Product used for unknown indication
  2. DULOXETINE [Interacting]
     Active Substance: DULOXETINE
     Indication: Product used for unknown indication
  3. DULOXETINE [Interacting]
     Active Substance: DULOXETINE
     Dosage: 30 MG 3 TIMES A WEEK
  4. SIMVASTATIN [Concomitant]
     Active Substance: SIMVASTATIN
     Indication: Product used for unknown indication
  5. ALLOPURINOL [Concomitant]
     Active Substance: ALLOPURINOL
     Indication: Product used for unknown indication
  6. FUROSEMIDE [Concomitant]
     Active Substance: FUROSEMIDE
     Indication: Product used for unknown indication
  7. LISINOPRIL [Concomitant]
     Active Substance: LISINOPRIL
     Indication: Product used for unknown indication

REACTIONS (7)
  - Thalamic infarction [Unknown]
  - Lacunar stroke [Unknown]
  - Hypertensive emergency [Unknown]
  - Haemodynamic instability [Unknown]
  - Drug interaction [Recovered/Resolved]
  - Inappropriate schedule of product administration [Recovered/Resolved]
  - Treatment noncompliance [Recovered/Resolved]
